FAERS Safety Report 20339175 (Version 1)
Quarter: 2022Q1

REPORT INFORMATION
  Report Type: Spontaneous
  Country: FR (occurrence: FR)
  Receive Date: 20220117
  Receipt Date: 20220117
  Transmission Date: 20220423
  Serious: Yes (Other)
  Sender: FDA-Public Use
  Company Number: FR-SUN PHARMACEUTICAL INDUSTRIES LTD-2022RR-323514

PATIENT
  Age: 49 Year
  Sex: Female

DRUGS (3)
  1. CLOMIPRAMINE [Suspect]
     Active Substance: CLOMIPRAMINE
     Indication: Depression
     Dosage: 75 MILLIGRAM, DAILY
     Route: 065
  2. FLUOXETINE [Suspect]
     Active Substance: FLUOXETINE HYDROCHLORIDE
     Indication: Depression
     Dosage: 20 MILLIGRAM, DAILY
     Route: 065
  3. MIANSERIN [Suspect]
     Active Substance: MIANSERIN
     Indication: Depression
     Dosage: 60 MILLIGRAM, DAILY
     Route: 065

REACTIONS (5)
  - Dizziness [Recovering/Resolving]
  - Therapeutic product effect incomplete [Recovering/Resolving]
  - Nausea [Recovering/Resolving]
  - Balance disorder [Recovering/Resolving]
  - Dry mouth [Recovering/Resolving]
